FAERS Safety Report 16613571 (Version 2)
Quarter: 2020Q2

REPORT INFORMATION
  Report Type: Report from Study
  Country: CN (occurrence: CN)
  Receive Date: 20190723
  Receipt Date: 20200612
  Transmission Date: 20200713
  Serious: Yes (Other)
  Sender: FDA-Public Use
  Company Number: CN-SUN PHARMACEUTICAL INDUSTRIES LTD-2019R1-213857

PATIENT
  Age: 56 Year
  Sex: Female

DRUGS (4)
  1. TEMOZOLOMIDE. [Suspect]
     Active Substance: TEMOZOLOMIDE
     Indication: CARCINOID TUMOUR
     Dosage: UNK, QD (200 MG/M2 ONCE DAILY, DAYS 10-14 (EVERY 28 DAY)
     Route: 048
     Dates: start: 2014, end: 2018
  2. VITAMIN B6 [Concomitant]
     Active Substance: PYRIDOXINE HYDROCHLORIDE
     Indication: PALMAR-PLANTAR ERYTHRODYSAESTHESIA SYNDROME
     Dosage: UNK, TID
     Route: 048
  3. CAPECITABINE. [Suspect]
     Active Substance: CAPECITABINE
     Indication: CARCINOID TUMOUR
     Dosage: UNK , BID (750 MG/M2 TWICE DAILY, DAYS 1-14 (EVERY 28 DAY)
     Route: 048
     Dates: start: 2014, end: 2018
  4. ONDANSETRON [Concomitant]
     Active Substance: ONDANSETRON
     Indication: GASTROINTESTINAL DISORDER
     Dosage: UNK, QD
     Route: 048

REACTIONS (1)
  - Disease progression [Unknown]
